FAERS Safety Report 9638014 (Version 1)
Quarter: 2013Q4

REPORT INFORMATION
  Report Type: Report from Study
  Country: EC (occurrence: EC)
  Receive Date: 20131022
  Receipt Date: 20131022
  Transmission Date: 20140711
  Serious: Yes (Other)
  Sender: FDA-Public Use
  Company Number: PHHY2013EC118817

PATIENT
  Age: 75 Year
  Sex: Female

DRUGS (5)
  1. DIOVAN [Suspect]
     Indication: HYPERTENSION
     Dosage: 160 MG, DAILY
     Route: 048
     Dates: start: 2012, end: 201308
  2. DIOVAN [Suspect]
     Dosage: 320 MG, UNK
     Dates: start: 201308
  3. RASILEZ [Suspect]
     Dosage: 300 MG, QD
     Route: 048
     Dates: start: 201305, end: 201308
  4. CORENTEL D [Concomitant]
     Indication: HYPERTENSION
     Dosage: 5/6.25 MG, QD
     Route: 048
  5. CARDURA [Concomitant]
     Indication: HYPERTENSION
     Dosage: 2 MG, QD
     Dates: start: 201308

REACTIONS (2)
  - Hand fracture [Recovering/Resolving]
  - Wrist fracture [Recovering/Resolving]
